FAERS Safety Report 18321252 (Version 1)
Quarter: 2020Q3

REPORT INFORMATION
  Report Type: Spontaneous
  Country: CN (occurrence: CN)
  Receive Date: 20200928
  Receipt Date: 20200928
  Transmission Date: 20201103
  Serious: Yes (Other)
  Sender: FDA-Public Use
  Company Number: CN-BAYER-2020-198487

PATIENT
  Age: 65 Year
  Sex: Male
  Weight: 54.88 kg

DRUGS (4)
  1. OPDIVO [Suspect]
     Active Substance: NIVOLUMAB
     Indication: SMALL INTESTINE CARCINOMA
     Dosage: 160 MILLIGRAM
     Route: 042
     Dates: start: 20190919
  2. STIVARGA [Suspect]
     Active Substance: REGORAFENIB
     Indication: SMALL INTESTINE CARCINOMA
     Dosage: 80 MG, QD
     Route: 048
     Dates: start: 20190807, end: 20190825
  3. STIVARGA [Suspect]
     Active Substance: REGORAFENIB
     Indication: SMALL INTESTINE CARCINOMA
     Dosage: 80 MG, QD
     Route: 048
     Dates: start: 20190904, end: 20190925
  4. OPDIVO [Suspect]
     Active Substance: NIVOLUMAB
     Indication: SMALL INTESTINE CARCINOMA
     Dosage: 180 MILLIGRAM
     Route: 042
     Dates: start: 20190807, end: 20190905

REACTIONS (4)
  - Metastases to liver [None]
  - Blood corticotrophin increased [None]
  - Hepatic function abnormal [None]
  - Intentional product use issue [None]

NARRATIVE: CASE EVENT DATE: 20190930
